FAERS Safety Report 7626763-X (Version None)
Quarter: 2011Q3

REPORT INFORMATION
  Report Type: 
  Country: None (occurrence: None)
  Receive Date: 20110713
  Receipt Date: 20110629
  Transmission Date: 20111222
  Serious: Yes (Hospitalization, Other)
  Sender: FDA-Public Use
  Company Number: UCM201106-000024

PATIENT
  Age: 80 Year
  Sex: Female

DRUGS (3)
  1. BISACODYL [Suspect]
     Indication: BOWEL PREPARATION
  2. HYDROCHLOROTHIAZIDE [Suspect]
     Indication: HYPERTENSION
  3. POLYETHYLENE GLYCOL [Suspect]
     Indication: BOWEL PREPARATION

REACTIONS (11)
  - HYPONATRAEMIA [None]
  - BLOOD POTASSIUM DECREASED [None]
  - WATER INTOXICATION [None]
  - BLOOD ANTIDIURETIC HORMONE INCREASED [None]
  - HYPOVOLAEMIA [None]
  - BRAIN OEDEMA [None]
  - DEPRESSED LEVEL OF CONSCIOUSNESS [None]
  - NAUSEA [None]
  - DIARRHOEA [None]
  - BLOOD PRESSURE DIASTOLIC DECREASED [None]
  - VOMITING [None]
